FAERS Safety Report 10155654 (Version 1)
Quarter: 2014Q2

REPORT INFORMATION
  Report Type: Spontaneous
  Country: US (occurrence: US)
  Receive Date: 20140506
  Receipt Date: 20140506
  Transmission Date: 20141212
  Serious: Yes (Other)
  Sender: FDA-Public Use
  Company Number: US-GLAXOSMITHKLINE-A1071393A

PATIENT
  Age: 74 Year
  Sex: Male

DRUGS (2)
  1. RYTHMOL SR [Suspect]
     Indication: CARDIAC FIBRILLATION
     Dosage: 325MG TWICE PER DAY
     Route: 048
  2. SIMVASTATIN [Concomitant]

REACTIONS (1)
  - Parkinson^s disease [Not Recovered/Not Resolved]
